FAERS Safety Report 9845945 (Version 2)
Quarter: 2014Q1

REPORT INFORMATION
  Report Type: Report from Study
  Country: DE (occurrence: NL)
  Receive Date: 20140127
  Receipt Date: 20140127
  Transmission Date: 20141002
  Serious: Yes (Hospitalization, Other)
  Sender: FDA-Public Use
  Company Number: DE-ACTELION-A-NJ2013-89191

PATIENT
  Age: 59 Year
  Sex: Female

DRUGS (13)
  1. VENTAVIS [Suspect]
     Indication: PULMONARY ARTERIAL HYPERTENSION
     Dosage: 5 MCG, 6 TIMES
     Route: 055
     Dates: start: 20130522
  2. VENTAVIS [Suspect]
     Dosage: 9 TIMES A DAY
     Route: 055
  3. TRACLEER [Concomitant]
  4. DOMPERIDON [Concomitant]
  5. METHOTREXAT [Concomitant]
  6. OMEPRAZOLE [Concomitant]
  7. FOLIUMZUUR KRING [Concomitant]
  8. VITAMIN D3 [Concomitant]
  9. REVATIO [Concomitant]
  10. SPIRONOLACTONE [Concomitant]
  11. FUROSEMIDE [Concomitant]
  12. ELIDEL [Concomitant]
  13. EPOPROSTENOL [Concomitant]
     Dosage: UNK
     Dates: start: 201311

REACTIONS (5)
  - Pulmonary arterial hypertension [Unknown]
  - Dyspnoea [Recovered/Resolved]
  - Coronary artery occlusion [Unknown]
  - Visual impairment [Not Recovered/Not Resolved]
  - Dyspnoea [Not Recovered/Not Resolved]
